FAERS Safety Report 10704078 (Version 1)
Quarter: 2015Q1

REPORT INFORMATION
  Report Type: Spontaneous
  Country: US (occurrence: None)
  Receive Date: 20150109
  Receipt Date: 20150109
  Transmission Date: 20150721
  Serious: Yes (Other)
  Sender: FDA-Public Use
  Company Number: None

PATIENT
  Age: 57 Year
  Sex: Female
  Weight: 60.5 kg

DRUGS (1)
  1. 1 % LIDOCAINE HCL INJECTION, USP (LIDOCAINE HYDROCHLORIDE) [Suspect]
     Active Substance: LIDOCAINE HYDROCHLORIDE
     Indication: LOCAL ANAESTHESIA
     Route: 023
     Dates: start: 20141111, end: 20141212

REACTIONS (3)
  - Post procedural complication [None]
  - Scab [None]
  - Rash [None]

NARRATIVE: CASE EVENT DATE: 20141126
